FAERS Safety Report 4778359-5 (Version None)
Quarter: 2005Q3

REPORT INFORMATION
  Report Type: 
  Country: None (occurrence: None)
  Receive Date: 20050926
  Receipt Date: 20050919
  Transmission Date: 20060218
  Serious: Yes (Hospitalization)
  Sender: FDA-Public Use
  Company Number: US-JNJFOC-20050704064

PATIENT
  Sex: Female
  Weight: 65.32 kg

DRUGS (1)
  1. DURAGESIC-100 [Suspect]
     Route: 062

REACTIONS (4)
  - DRUG WITHDRAWAL SYNDROME [None]
  - FALL [None]
  - INJURY [None]
  - PELVIC FRACTURE [None]
